FAERS Safety Report 23629120 (Version 1)
Quarter: 2024Q1

REPORT INFORMATION
  Report Type: Spontaneous
  Country: AU (occurrence: AU)
  Receive Date: 20240313
  Receipt Date: 20240313
  Transmission Date: 20240410
  Serious: Yes (Hospitalization, Other)
  Sender: FDA-Public Use
  Company Number: AU-Eisai-EC-2024-161361

PATIENT
  Age: 41 Year
  Sex: Male

DRUGS (4)
  1. FYCOMPA [Suspect]
     Active Substance: PERAMPANEL
     Indication: Partial seizures
     Dosage: FREQUENCY UNKNOWN
     Route: 041
  2. FYCOMPA [Suspect]
     Active Substance: PERAMPANEL
     Dosage: FREQUENCY UNKNOWN
     Route: 041
  3. CARBAMAZEPINE [Concomitant]
     Active Substance: CARBAMAZEPINE
     Indication: Partial seizures
  4. CLOBAZAM [Concomitant]
     Active Substance: CLOBAZAM
     Indication: Partial seizures

REACTIONS (6)
  - Seizure [Recovered/Resolved]
  - Suicide attempt [Recovered/Resolved]
  - Irritability [Recovered/Resolved]
  - Affect lability [Recovered/Resolved]
  - Agitation [Recovered/Resolved]
  - Paranoia [Recovered/Resolved]
